FAERS Safety Report 12402051 (Version 3)
Quarter: 2018Q3

REPORT INFORMATION
  Report Type: Spontaneous
  Country: US (occurrence: US)
  Receive Date: 20160525
  Receipt Date: 20180912
  Transmission Date: 20181010
  Serious: No
  Sender: FDA-Public Use
  Company Number: US-SA-2015SA221411

PATIENT
  Age: 72 Year
  Sex: Male

DRUGS (1)
  1. LANTUS SOLOSTAR [Suspect]
     Active Substance: INSULIN GLARGINE
     Indication: TYPE 2 DIABETES MELLITUS
     Dosage: UNK UNK, QD 40?50 UNITS
     Route: 065

REACTIONS (6)
  - Atrophy [Not Recovered/Not Resolved]
  - Injection site fibrosis [Unknown]
  - Product storage error [Unknown]
  - Injection site atrophy [Not Recovered/Not Resolved]
  - Muscle disorder [Not Recovered/Not Resolved]
  - Injection site pain [Not Recovered/Not Resolved]
